FAERS Safety Report 8790638 (Version 1)
Quarter: 2012Q4

REPORT INFORMATION
  Report Type: Spontaneous
  Country: US (occurrence: None)
  Receive Date: 20120907
  Receipt Date: 20120907
  Transmission Date: 20130627
  Serious: Yes (Other)
  Sender: FDA-Public Use
  Company Number: 20120532

PATIENT
  Age: 21 Year
  Sex: Female
  Weight: 54.4 kg

DRUGS (1)
  1. VENOFER [Suspect]
     Indication: IRON DEFICIENCY ANEMIA
     Route: 042
     Dates: start: 20120821, end: 20120821

REACTIONS (1)
  - Hypersensitivity [None]
